FAERS Safety Report 4908521-X (Version None)
Quarter: 2006Q1

REPORT INFORMATION
  Report Type: 
  Country: None (occurrence: None)
  Receive Date: 20060210
  Receipt Date: 20050816
  Transmission Date: 20060701
  Serious: Yes (Other)
  Sender: FDA-Public Use
  Company Number: US-GLAXOSMITHKLINE-A0570434A

PATIENT
  Sex: Female

DRUGS (2)
  1. PAXIL CR [Suspect]
     Indication: DEPRESSION
     Route: 048
     Dates: start: 20050101
  2. PAXIL [Suspect]
     Indication: DEPRESSION
     Route: 048
     Dates: start: 20000101

REACTIONS (6)
  - DRUG WITHDRAWAL SYNDROME [None]
  - DYSPEPSIA [None]
  - GASTROENTERITIS [None]
  - HYPOAESTHESIA [None]
  - PARAESTHESIA [None]
  - THROAT IRRITATION [None]
